FAERS Safety Report 5452825-1 (Version None)
Quarter: 2007Q3

REPORT INFORMATION
  Report Type: 
  Country: None (occurrence: None)
  Receive Date: 20070914
  Receipt Date: 20070904
  Transmission Date: 20080115
  Serious: Yes (Death)
  Sender: FDA-Public Use
  Company Number: US-TYCO HEALTHCARE/MALLINCKRODT-T200701042

PATIENT
  Age: 38 Year
  Sex: Female

DRUGS (4)
  1. METHADONE [Suspect]
     Indication: PAIN
  2. HYDROMORPHONE HCL [Suspect]
  3. TOPAMAX [Suspect]
     Indication: MIGRAINE
  4. ANTIDEPRESSANTS [Suspect]

REACTIONS (1)
  - DEATH [None]
